FAERS Safety Report 7742735-9 (Version None)
Quarter: 2011Q3

REPORT INFORMATION
  Report Type: 
  Country: None (occurrence: None)
  Receive Date: 20110912
  Receipt Date: 20110831
  Transmission Date: 20111222
  Serious: Yes (Hospitalization)
  Sender: FDA-Public Use
  Company Number: CH-NOVOPROD-334415

PATIENT

DRUGS (7)
  1. ACETAMINOPHEN [Concomitant]
  2. NOCTAMID [Concomitant]
  3. DISTRANEURIN                       /00027501/ [Concomitant]
  4. ASPIRIN [Concomitant]
  5. MIXTARD 30 HM [Suspect]
     Indication: PRODUCT USED FOR UNKNOWN INDICATION
     Dosage: 10 IU, QD
     Route: 058
     Dates: start: 20080101, end: 20101219
  6. TORSEMIDE [Concomitant]
  7. DIGOXIN [Concomitant]

REACTIONS (2)
  - HYPOGLYCAEMIA [None]
  - MALAISE [None]
